FAERS Safety Report 14620968 (Version 2)
Quarter: 2018Q1

REPORT INFORMATION
  Report Type: Spontaneous
  Country: LT (occurrence: LT)
  Receive Date: 20180309
  Receipt Date: 20180329
  Transmission Date: 20180509
  Serious: Yes (Life-Threatening, Hospitalization)
  Sender: FDA-Public Use
  Company Number: LT-009507513-1803LTU002369

PATIENT
  Age: 53 Year
  Sex: Female

DRUGS (19)
  1. DEXAMETHASONE. [Interacting]
     Active Substance: DEXAMETHASONE
     Indication: PREMEDICATION
     Dosage: 4 MG (8 TABLETS), DAILY
     Route: 048
     Dates: start: 2016
  2. FOLIC ACID. [Interacting]
     Active Substance: FOLIC ACID
     Indication: PREMEDICATION
     Dosage: 1000 MG, DAILY
     Route: 042
  3. CISPLATIN. [Interacting]
     Active Substance: CISPLATIN
     Dosage: 150 MG, DAILY II CYCLE (AFTER 6 PREVIOUS CYCLES OF CISPLATIN AND PEMETREXED)
     Route: 042
     Dates: start: 201611, end: 2016
  4. APREPITANT. [Suspect]
     Active Substance: APREPITANT
     Indication: PROPHYLAXIS OF NAUSEA AND VOMITING
     Dosage: 125 MG, DAILY
     Route: 048
     Dates: start: 2016
  5. ONDANSETRON [Interacting]
     Active Substance: ONDANSETRON
     Dosage: 8 MG, DAILY
     Route: 048
     Dates: start: 2016
  6. CISPLATIN. [Interacting]
     Active Substance: CISPLATIN
     Indication: PLEURAL MESOTHELIOMA
     Dosage: UNK
     Route: 042
     Dates: start: 2010
  7. SHARK CARTILAGE [Interacting]
     Active Substance: SHARK CARTILAGE\SHARK, UNSPECIFIED
     Indication: PRODUCT USED FOR UNKNOWN INDICATION
     Dosage: 8 ML, QD
     Route: 048
     Dates: start: 2016
  8. ALPRAZOLAM. [Interacting]
     Active Substance: ALPRAZOLAM
     Indication: ANXIETY DISORDER
     Dosage: 0.5 MG, DAILY (LONG-TERM USE)
     Route: 048
  9. PEMETREXED DISODIUM [Suspect]
     Active Substance: PEMETREXED DISODIUM
     Indication: PLEURAL MESOTHELIOMA
     Dosage: UNK
     Dates: start: 2015, end: 2016
  10. PEMETREXED DISODIUM [Suspect]
     Active Substance: PEMETREXED DISODIUM
     Dosage: UNK, SECOND CYCLE
  11. BETALOC [Interacting]
     Active Substance: METOPROLOL TARTRATE
     Indication: HYPERTENSION
     Dosage: 47.5 MG, DAILY (LONG-TERM USE)
     Route: 048
  12. FENTANYL. [Interacting]
     Active Substance: FENTANYL
     Indication: PAIN MANAGEMENT
     Dosage: UNK, DAILY (75 UG/H, LONG-TERM USE)
     Route: 061
  13. TIANEPTINE [Interacting]
     Active Substance: TIANEPTINE
     Indication: PAIN MANAGEMENT
     Dosage: UNK
  14. TRAMADOL HYDROCHLORIDE. [Interacting]
     Active Substance: TRAMADOL HYDROCHLORIDE
     Indication: PAIN MANAGEMENT
     Dosage: 100 MG, DAILY (LONG-TERM USE)
     Route: 048
  15. CISPLATIN. [Interacting]
     Active Substance: CISPLATIN
     Dosage: UNK
     Dates: start: 2015, end: 2016
  16. MANNITOL. [Interacting]
     Active Substance: MANNITOL
     Indication: DRUG TOXICITY PROPHYLAXIS
     Dosage: 1000 ML, DAILY (10 PROC.)
     Route: 042
     Dates: start: 2016
  17. CYANOCOBALAMIN. [Interacting]
     Active Substance: CYANOCOBALAMIN
     Dosage: 1000 MG, UNK
     Route: 042
  18. EPINEPHRINE. [Suspect]
     Active Substance: EPINEPHRINE
     Indication: CARDIO-RESPIRATORY ARREST
  19. TIANEPTINE [Interacting]
     Active Substance: TIANEPTINE
     Indication: DEPRESSION
     Dosage: 12.5 MG, DAILY (LONG-TERM USE)
     Route: 048

REACTIONS (4)
  - Underdose [Recovered/Resolved]
  - Circulatory collapse [Recovering/Resolving]
  - Drug interaction [Recovering/Resolving]
  - Cardio-respiratory arrest [Recovering/Resolving]

NARRATIVE: CASE EVENT DATE: 2017
